FAERS Safety Report 13536940 (Version 1)
Quarter: 2017Q2

REPORT INFORMATION
  Report Type: Spontaneous
  Country: US (occurrence: US)
  Receive Date: 20170511
  Receipt Date: 20170511
  Transmission Date: 20170830
  Serious: No
  Sender: FDA-Public Use
  Company Number: US-009507513-1705USA003115

PATIENT
  Sex: Female

DRUGS (1)
  1. LOSARTAN POTASSIUM TABLETS [Suspect]
     Active Substance: LOSARTAN POTASSIUM
     Indication: BLOOD PRESSURE MANAGEMENT
     Dosage: UNK, UNKNOWN
     Route: 065
     Dates: start: 201704, end: 201705

REACTIONS (8)
  - Throat irritation [Unknown]
  - Myalgia [Unknown]
  - Pain in extremity [Unknown]
  - Dry throat [Unknown]
  - Arthralgia [Unknown]
  - Eye pruritus [Unknown]
  - Seasonal allergy [Unknown]
  - Feeling abnormal [Unknown]

NARRATIVE: CASE EVENT DATE: 20170501
